FAERS Safety Report 15181163 (Version 1)
Quarter: 2018Q3

REPORT INFORMATION
  Report Type: Spontaneous
  Country: US (occurrence: US)
  Receive Date: 20180723
  Receipt Date: 20180723
  Transmission Date: 20181010
  Serious: No
  Sender: FDA-Public Use
  Company Number: US-SA-2018SA170684

PATIENT
  Age: 67 Year
  Sex: Female

DRUGS (1)
  1. APIDRA [Suspect]
     Active Substance: INSULIN GLULISINE
     Indication: DIABETES MELLITUS
     Dosage: 1.1 UNITS PER HOUR AND MY BOLUS IS UP TO 10 UNITS,
     Route: 065

REACTIONS (1)
  - Blood insulin abnormal [Recovered/Resolved]
